FAERS Safety Report 24594789 (Version 1)
Quarter: 2024Q4

REPORT INFORMATION
  Report Type: Spontaneous
  Country: KR (occurrence: KR)
  Receive Date: 20241108
  Receipt Date: 20241108
  Transmission Date: 20250114
  Serious: Yes (Other)
  Sender: NOVARTIS
  Company Number: KR-002147023-NVSC2024KR210457

PATIENT
  Age: 21 Year
  Sex: Male
  Weight: 68.5 kg

DRUGS (14)
  1. CYCLOSPORINE [Suspect]
     Active Substance: CYCLOSPORINE
     Indication: Product used for unknown indication
     Dosage: UNK
     Route: 065
  2. BUSULFAN [Concomitant]
     Active Substance: BUSULFAN
     Indication: Product used for unknown indication
     Dosage: 261 MG, QD
     Route: 065
     Dates: start: 20211228, end: 20211231
  3. CYCLOPHOSPHAMIDE [Concomitant]
     Active Substance: CYCLOPHOSPHAMIDE
     Indication: Product used for unknown indication
     Dosage: 4980 MG, QD
     Route: 065
     Dates: start: 20220101, end: 20220102
  4. ACETAMINOPHEN [Concomitant]
     Active Substance: ACETAMINOPHEN
     Indication: Pyrexia
     Dosage: 2 DOSAGE FORM, QD
     Route: 065
     Dates: start: 20211226, end: 20220118
  5. ACYCLOVIR [Concomitant]
     Active Substance: ACYCLOVIR
     Indication: Infection prophylaxis
     Dosage: 750 MG
     Route: 065
     Dates: start: 20211228, end: 20220119
  6. CYCLOSPORINE [Concomitant]
     Active Substance: CYCLOSPORINE
     Indication: Prophylaxis against graft versus host disease
     Dosage: 400 MG
     Route: 065
     Dates: start: 20220103, end: 20220118
  7. LEVOFLOXACIN [Concomitant]
     Active Substance: LEVOFLOXACIN
     Indication: Infection prophylaxis
     Dosage: 500 MG, QD
     Route: 065
     Dates: start: 20211227, end: 20220101
  8. ALPROSTADIL [Concomitant]
     Active Substance: ALPROSTADIL
     Indication: Cardiovascular event prophylaxis
     Dosage: 60 MG, QD
     Route: 065
     Dates: start: 20211227, end: 20220121
  9. CLONAZEPAM [Concomitant]
     Active Substance: CLONAZEPAM
     Indication: Seizure prophylaxis
     Dosage: 2 DOSAGE FORM, QD
     Route: 065
     Dates: start: 20211227, end: 20220101
  10. PROPACETAMOL HYDROCHLORIDE [Concomitant]
     Active Substance: PROPACETAMOL HYDROCHLORIDE
     Indication: Pyrexia
     Dosage: 2 DOSAGE FORM, QD
     Route: 065
     Dates: start: 20220101, end: 20220113
  11. METHOTREXATE [Concomitant]
     Active Substance: METHOTREXATE
     Indication: Prophylaxis against graft versus host disease
     Dosage: 30 MG, QD
     Route: 065
     Dates: start: 20220105, end: 20220115
  12. ALLOPURINOL [Concomitant]
     Active Substance: ALLOPURINOL
     Indication: Prophylaxis
     Dosage: 3 DOSAGE FORM, QD
     Route: 065
     Dates: start: 20211228, end: 20220102
  13. TRAMADOL HYDROCHLORIDE [Concomitant]
     Active Substance: TRAMADOL HYDROCHLORIDE
     Indication: Pyrexia
     Dosage: 50 MG (EVERY 8 DAYS)
     Route: 065
     Dates: start: 20211231, end: 20220118
  14. URSODIOL [Concomitant]
     Active Substance: URSODIOL
     Indication: Drug toxicity prophylaxis
     Dosage: 3 MG, QD
     Route: 065
     Dates: start: 20211225, end: 20220125

REACTIONS (7)
  - Hyperbilirubinaemia [Recovered/Resolved]
  - Acute lymphocytic leukaemia recurrent [Not Recovered/Not Resolved]
  - Neutropenia [Recovered/Resolved]
  - Diarrhoea [Recovered/Resolved]
  - Nausea [Recovered/Resolved]
  - Dyspepsia [Not Recovered/Not Resolved]
  - Neuralgia [Recovered/Resolved]

NARRATIVE: CASE EVENT DATE: 20220105
